FAERS Safety Report 9558929 (Version 1)
Quarter: 2013Q3

REPORT INFORMATION
  Report Type: Report from Study
  Country: US (occurrence: US)
  Receive Date: 20130927
  Receipt Date: 20130927
  Transmission Date: 20140515
  Serious: Yes (Life-Threatening, Hospitalization, Other)
  Sender: FDA-Public Use
  Company Number: US-009507513-1309USA011619

PATIENT
  Age: 9 Year
  Sex: Female
  Weight: 31.4 kg

DRUGS (6)
  1. ELSPAR [Suspect]
     Indication: B PRECURSOR TYPE ACUTE LEUKAEMIA
     Dosage: 2500 IU/M2 OVER 1-2 HOURS ON DAY 2, 8, 15 AND 22
     Route: 030
     Dates: start: 20130906, end: 20130916
  2. VELCADE [Suspect]
     Indication: B PRECURSOR TYPE ACUTE LEUKAEMIA
     Dosage: 1.3 MG/M2, OVER 3-5 SECONDS ON DAY 1,4,5,AND 11
     Route: 042
     Dates: start: 20130906, end: 20130916
  3. CYTARABINE [Suspect]
     Indication: B PRECURSOR TYPE ACUTE LEUKAEMIA
     Dosage: 30-70 MG AND BASED ON AGE ON DAY 1
     Route: 037
     Dates: start: 20130905, end: 20130905
  4. DOXORUBICIN [Suspect]
     Indication: B PRECURSOR TYPE ACUTE LEUKAEMIA
     Dosage: 60 MG/M2, OVER 15 MINUTES ON DAY 1
     Route: 042
     Dates: start: 20130906, end: 20130906
  5. VINCRISTINE SULFATE [Suspect]
     Indication: B PRECURSOR TYPE ACUTE LEUKAEMIA
     Dosage: 1.5 MG/M2, OVER 1 MINUTE ON DAY 1, 8, 15 AND 22
     Route: 042
     Dates: start: 20130906, end: 20130913
  6. BENADRYL [Concomitant]
     Dosage: UNK
     Dates: start: 20130916

REACTIONS (2)
  - Sepsis [Not Recovered/Not Resolved]
  - Convulsion [Not Recovered/Not Resolved]
